FAERS Safety Report 21833321 (Version 1)
Quarter: 2023Q1

REPORT INFORMATION
  Report Type: Spontaneous
  Country: DE (occurrence: DE)
  Receive Date: 20230107
  Receipt Date: 20230107
  Transmission Date: 20230417
  Serious: Yes (Other)
  Sender: FDA-Public Use
  Company Number: DE-EMBRYOTOX-202101368

PATIENT
  Age: 1 Day
  Sex: Male
  Weight: 2.42 kg

DRUGS (1)
  1. SERTRALINE [Suspect]
     Active Substance: SERTRALINE HYDROCHLORIDE
     Indication: Depression
     Dosage: 100 MILLIGRAM, ONCE A DAY (100 MG/D)
     Route: 064
     Dates: start: 20201221, end: 20210915

REACTIONS (4)
  - Neonatal respiratory distress [Recovered/Resolved]
  - Small for dates baby [Unknown]
  - Cyanosis neonatal [Recovered/Resolved]
  - Foetal exposure during pregnancy [Unknown]

NARRATIVE: CASE EVENT DATE: 20210901
